FAERS Safety Report 6715240-6 (Version None)
Quarter: 2010Q2

REPORT INFORMATION
  Report Type: 
  Country: None (occurrence: None)
  Receive Date: 20100507
  Receipt Date: 20100430
  Transmission Date: 20101027
  Serious: Yes (Death)
  Sender: FDA-Public Use
  Company Number: US-JNJFOC-20100500311

PATIENT
  Sex: Female

DRUGS (2)
  1. EXTRA STRENGTH TYLENOL PM [Suspect]
     Indication: INSOMNIA
     Route: 048
  2. REBIF [Suspect]
     Indication: MULTIPLE SCLEROSIS
     Route: 058

REACTIONS (1)
  - HEPATIC FAILURE [None]
